FAERS Safety Report 8291507-8 (Version None)
Quarter: 2012Q2

REPORT INFORMATION
  Report Type: 
  Country: None (occurrence: None)
  Receive Date: 20120417
  Receipt Date: 20120416
  Transmission Date: 20120825
  Serious: No
  Sender: FDA-Public Use
  Company Number: US-PFIZER INC-2012093709

PATIENT
  Sex: Female
  Weight: 65.76 kg

DRUGS (1)
  1. CLINDAMYCIN PHOSPHATE [Suspect]
     Indication: ACNE
     Dosage: UNK,DAILY
     Route: 061
     Dates: end: 20120401

REACTIONS (1)
  - RASH MACULAR [None]
